FAERS Safety Report 12694258 (Version 1)
Quarter: 2016Q3

REPORT INFORMATION
  Report Type: Spontaneous
  Country: CN (occurrence: CN)
  Receive Date: 20160829
  Receipt Date: 20160829
  Transmission Date: 20161109
  Serious: Yes (Other)
  Sender: FDA-Public Use
  Company Number: CN-PFIZER INC-2016398353

PATIENT
  Age: 28 Year
  Sex: Male
  Weight: 46 kg

DRUGS (4)
  1. VINDESINE SULFATE [Suspect]
     Active Substance: VINDESINE SULFATE
     Indication: HODGKIN^S DISEASE
     Dosage: 4 MG, 1X/DAY
     Route: 041
     Dates: start: 20160523, end: 20160523
  2. BLEOMYCIN HYDROCHLORIDE [Suspect]
     Active Substance: BLEOMYCIN HYDROCHLORIDE
     Indication: HODGKIN^S DISEASE
     Dosage: 1.5 IU, 1X/DAY
     Route: 030
     Dates: start: 20160523, end: 20160523
  3. DACARBAZINE. [Suspect]
     Active Substance: DACARBAZINE
     Indication: HODGKIN^S DISEASE
     Dosage: 0.6 G, 1X/DAY
     Route: 041
     Dates: start: 20160523, end: 20160523
  4. PHARMORUBICIN [Suspect]
     Active Substance: EPIRUBICIN
     Indication: HODGKIN^S DISEASE
     Dosage: 49 MG, 1X/DAY
     Route: 041
     Dates: start: 20160523, end: 20160523

REACTIONS (1)
  - Hepatic function abnormal [Recovering/Resolving]

NARRATIVE: CASE EVENT DATE: 20160526
